FAERS Safety Report 11671249 (Version 1)
Quarter: 2015Q4

REPORT INFORMATION
  Report Type: Spontaneous
  Country: US (occurrence: US)
  Receive Date: 20151028
  Receipt Date: 20151028
  Transmission Date: 20160304
  Serious: Yes (Other)
  Sender: FDA-Public Use
  Company Number: US-BAYER-2015-447023

PATIENT
  Age: 45 Year
  Sex: Female

DRUGS (2)
  1. ROMILAR [Suspect]
     Active Substance: DEXTROMETHORPHAN HYDROBROMIDE
     Dosage: 120 TO180 MG A DAY CONTINUOUSLY
  2. ROMILAR [Suspect]
     Active Substance: DEXTROMETHORPHAN HYDROBROMIDE
     Dosage: 800 MG, MORE THAN ONCE A DAY

REACTIONS (10)
  - Drug withdrawal syndrome [None]
  - Restlessness [None]
  - Depression [None]
  - Drug tolerance [None]
  - Drug dependence [None]
  - Agitation [None]
  - Psychotic disorder [None]
  - Euphoric mood [None]
  - Drug abuse [None]
  - Fatigue [None]
